FAERS Safety Report 9416074 (Version 3)
Quarter: 2013Q3

REPORT INFORMATION
  Report Type: Spontaneous
  Country: IT (occurrence: IT)
  Receive Date: 20130724
  Receipt Date: 20130922
  Transmission Date: 20140515
  Serious: Yes (Hospitalization)
  Sender: FDA-Public Use
  Company Number: IT-MYLANLABS-2013S1015365

PATIENT
  Age: 84 Year
  Sex: Female

DRUGS (12)
  1. LISINOPRIL [Suspect]
     Indication: HYPERTENSIVE HEART DISEASE
     Route: 048
     Dates: start: 20020109, end: 20130613
  2. FUROSEMIDE [Suspect]
     Indication: HYPERTENSIVE HEART DISEASE
     Route: 048
     Dates: start: 20020109, end: 20130613
  3. LASITONE [Suspect]
     Indication: HYPERTENSIVE HEART DISEASE
     Route: 048
     Dates: start: 20020109, end: 20130613
  4. NEBIVOLOL HYDROCHLORIDE [Suspect]
     Indication: HYPERTENSIVE HEART DISEASE
     Route: 048
     Dates: start: 20020109, end: 20130613
  5. EUTIROX [Concomitant]
     Indication: HYPOTHYROIDISM
     Dosage: 75 UG TABLETS 50 TABLETS
  6. DELTACORTENE [Concomitant]
     Indication: RHEUMATOID ARTHRITIS
     Dosage: 5 MG TABLETS 20 TABLETS
  7. METFORMIN HYDROCHLORIDE [Concomitant]
     Indication: TYPE 2 DIABETES MELLITUS
  8. OLANZAPINE [Concomitant]
     Indication: PRODUCT USED FOR UNKNOWN INDICATION
  9. AMINOPHILLINE [Concomitant]
     Indication: PRODUCT USED FOR UNKNOWN INDICATION
  10. CITALOPRAM [Concomitant]
     Indication: PRODUCT USED FOR UNKNOWN INDICATION
  11. METOTREXATE [Concomitant]
     Indication: RHEUMATOID ARTHRITIS
  12. ALLOPURINOL [Concomitant]
     Indication: PRODUCT USED FOR UNKNOWN INDICATION

REACTIONS (3)
  - Bradycardia [Recovered/Resolved]
  - Hypotension [Recovered/Resolved]
  - Renal failure acute [Recovered/Resolved]
